FAERS Safety Report 5607500-7 (Version None)
Quarter: 2008Q1

REPORT INFORMATION
  Report Type: 
  Country: None (occurrence: None)
  Receive Date: 20080125
  Receipt Date: 20080116
  Transmission Date: 20080703
  Serious: Yes (Other)
  Sender: FDA-Public Use
  Company Number: 18172

PATIENT
  Age: 44 Year
  Sex: Female

DRUGS (3)
  1. CYTARABINE [Suspect]
     Indication: MENINGEAL DISORDER
  2. ETOPOSIDE [Suspect]
     Indication: MENINGEAL DISORDER
  3. IFOSFAMIDE [Suspect]
     Indication: MENINGEAL DISORDER
     Dosage: 1.5 G/M2 QD

REACTIONS (10)
  - AGITATION [None]
  - DELUSION OF GRANDEUR [None]
  - FUNGAL OESOPHAGITIS [None]
  - GASTRITIS FUNGAL [None]
  - NEUROTOXICITY [None]
  - PSYCHOTIC DISORDER [None]
  - REFUSAL OF TREATMENT BY PATIENT [None]
  - SCREAMING [None]
  - STUPOR [None]
  - UNRESPONSIVE TO STIMULI [None]
